FAERS Safety Report 7471628-X (Version None)
Quarter: 2011Q1

REPORT INFORMATION
  Report Type: 
  Country: None (occurrence: None)
  Receive Date: 20110302
  Receipt Date: 20101209
  Transmission Date: 20110831
  Serious: Yes (Hospitalization)
  Sender: FDA-Public Use
  Company Number: 163-21880-10102978

PATIENT
  Age: 82 Year
  Sex: Male

DRUGS (13)
  1. REVLIMID [Suspect]
     Indication: POLYCYTHAEMIA VERA
     Dosage: 5 MG, 1 IN 1 D, PO
     Route: 048
     Dates: start: 20100901, end: 20101004
  2. METOPROLOL TARTRATE [Concomitant]
  3. NEXIUM [Concomitant]
  4. FOLIC ACID [Concomitant]
  5. COUMADIN [Concomitant]
  6. SENNA S (COLOXYL WITH SENNA) [Concomitant]
  7. PROSCAR [Concomitant]
  8. SYNTHROID [Concomitant]
  9. CIPROFLOXACIN [Concomitant]
  10. VITAMIN B12 [Concomitant]
  11. MULTI-VITAMINS [Concomitant]
  12. SOLIRIS [Suspect]
     Indication: PAROXYSMAL NOCTURNAL HAEMOGLOBINURIA
     Dosage: 600 MG, QW, IV
     Route: 042
     Dates: start: 20101104
  13. PREDNISONE [Concomitant]

REACTIONS (6)
  - FALL [None]
  - PLATELET COUNT DECREASED [None]
  - EXCORIATION [None]
  - WHITE BLOOD CELL COUNT DECREASED [None]
  - DEVICE OCCLUSION [None]
  - CELLULITIS [None]
